FAERS Safety Report 22233574 (Version 1)
Quarter: 2023Q2

REPORT INFORMATION
  Report Type: Spontaneous
  Country: US (occurrence: US)
  Receive Date: 20230420
  Receipt Date: 20230420
  Transmission Date: 20230721
  Serious: No
  Sender: FDA-Public Use
  Company Number: US-AUROBINDO-AUR-APL-2022-045341

PATIENT
  Sex: Female

DRUGS (2)
  1. CINACALCET HYDROCHLORIDE [Suspect]
     Active Substance: CINACALCET HYDROCHLORIDE
     Indication: Renal disorder
     Dosage: 1 ML OR 5 ML, ONCE A DAY
     Route: 065
     Dates: start: 20220926
  2. NORDITROPIN [Concomitant]
     Active Substance: SOMATROPIN
     Indication: Product used for unknown indication
     Dosage: UNK
     Route: 065

REACTIONS (3)
  - Wrong technique in product usage process [Unknown]
  - Product quality issue [Unknown]
  - Product preparation error [Unknown]
